FAERS Safety Report 14772747 (Version 1)
Quarter: 2018Q2

REPORT INFORMATION
  Report Type: Spontaneous
  Country: FR (occurrence: FR)
  Receive Date: 20180418
  Receipt Date: 20180418
  Transmission Date: 20180711
  Serious: Yes (Hospitalization, Other)
  Sender: FDA-Public Use
  Company Number: FR-MERCK KGAA-2045913

PATIENT
  Age: 60 Year
  Sex: Female

DRUGS (1)
  1. NOVOTHYROX [Suspect]
     Active Substance: LEVOTHYROXINE SODIUM
     Indication: AUTOIMMUNE THYROIDITIS
     Dates: end: 201708

REACTIONS (28)
  - Asthenia [Recovering/Resolving]
  - Visual impairment [None]
  - Sleep disorder [None]
  - Irritability [Recovering/Resolving]
  - Palpitations [None]
  - Headache [Recovering/Resolving]
  - Panic disorder [None]
  - Loss of libido [None]
  - Insomnia [None]
  - Eosinophil count increased [None]
  - Depression [None]
  - Loss of personal independence in daily activities [None]
  - Dizziness [None]
  - Blood cholesterol increased [None]
  - Drug intolerance [None]
  - Malaise [Recovering/Resolving]
  - Alopecia [None]
  - Personal relationship issue [None]
  - Pain [None]
  - Blood thyroid stimulating hormone increased [None]
  - Myalgia [Recovering/Resolving]
  - Fatigue [None]
  - Hot flush [None]
  - Abnormal behaviour [None]
  - Blood triglycerides increased [None]
  - Anti-thyroid antibody negative [None]
  - Transferrin saturation increased [None]
  - Anxiety [None]

NARRATIVE: CASE EVENT DATE: 2017
